FAERS Safety Report 7654036-8 (Version None)
Quarter: 2011Q3

REPORT INFORMATION
  Report Type: 
  Country: None (occurrence: None)
  Receive Date: 20110803
  Receipt Date: 20110722
  Transmission Date: 20111222
  Serious: Yes (Other)
  Sender: FDA-Public Use
  Company Number: PHEH2009US02400

PATIENT
  Sex: Female

DRUGS (3)
  1. AREDIA [Suspect]
  2. ZOMETA [Suspect]
  3. PAMIDRONATE DISODIUM [Suspect]

REACTIONS (20)
  - VOMITING [None]
  - SMALL INTESTINAL OBSTRUCTION [None]
  - DIVERTICULUM [None]
  - BREAST CANCER [None]
  - CENTRAL NERVOUS SYSTEM LESION [None]
  - DIARRHOEA [None]
  - LUNG NEOPLASM [None]
  - EMOTIONAL DISTRESS [None]
  - ARRHYTHMIA [None]
  - PARALYSIS [None]
  - DEFORMITY [None]
  - DIZZINESS [None]
  - INFECTION [None]
  - ANXIETY [None]
  - PAIN [None]
  - PHYSICAL DISABILITY [None]
  - SYNCOPE [None]
  - CHRONIC OBSTRUCTIVE PULMONARY DISEASE [None]
  - OSTEONECROSIS OF JAW [None]
  - RADICULOPATHY [None]
